FAERS Safety Report 8516328-X (Version None)
Quarter: 2012Q3

REPORT INFORMATION
  Report Type: 
  Country: None (occurrence: None)
  Receive Date: 20120718
  Receipt Date: 20120709
  Transmission Date: 20120928
  Serious: Yes (Hospitalization, Other)
  Sender: FDA-Public Use
  Company Number: TR-AMGEN-TURSP2012039469

PATIENT
  Age: 38 Year
  Sex: Female

DRUGS (1)
  1. ENBREL [Suspect]
     Indication: RHEUMATOID ARTHRITIS
     Dosage: 25 MG, 2X/WEEK
     Route: 058
     Dates: start: 20120322, end: 20120515

REACTIONS (10)
  - INJECTION SITE SWELLING [None]
  - INJECTION SITE PRURITUS [None]
  - UTERINE INFECTION [None]
  - INJECTION SITE HAEMATOMA [None]
  - MOVEMENT DISORDER [None]
  - ASTHENIA [None]
  - GAIT DISTURBANCE [None]
  - BLOOD COUNT ABNORMAL [None]
  - FATIGUE [None]
  - ILLUSION [None]
